FAERS Safety Report 21538577 (Version 1)
Quarter: 2022Q4

REPORT INFORMATION
  Report Type: Spontaneous
  Country: AR (occurrence: AR)
  Receive Date: 20221102
  Receipt Date: 20221102
  Transmission Date: 20230113
  Serious: Yes (Other)
  Sender: FDA-Public Use
  Company Number: AR-SUN PHARMACEUTICAL INDUSTRIES LTD-2022R1-361497

PATIENT
  Age: 36 Month
  Sex: Male

DRUGS (1)
  1. DEXAMETHASONE [Suspect]
     Active Substance: DEXAMETHASONE
     Indication: COVID-19
     Dosage: 0.6 MILLIGRAM/KILOGRAM, DAILY
     Route: 065

REACTIONS (1)
  - Therapy partial responder [Unknown]
